FAERS Safety Report 5206011-0 (Version None)
Quarter: 2007Q1

REPORT INFORMATION
  Report Type: 
  Country: None (occurrence: None)
  Receive Date: 20070108
  Receipt Date: 20061025
  Transmission Date: 20070707
  Serious: Yes (Other)
  Sender: FDA-Public Use
  Company Number: HQWYE458127NOV06

PATIENT
  Age: 71 Year
  Sex: Male

DRUGS (4)
  1. ARTANE [Suspect]
     Indication: PARKINSON'S DISEASE
     Dosage: 2 NG 3X PER 1 DAY; ORAL
     Route: 048
     Dates: start: 20061024, end: 20061029
  2. MODOPAR (BENSERAZIDE HYDROCHLORIDE/LEVODOPA) [Concomitant]
  3. PRAMIPEXOLE DIHYDROCHLORIDE [Concomitant]
  4. SELEGILINE HYDROCHLORIDE [Concomitant]

REACTIONS (3)
  - CONFUSIONAL STATE [None]
  - HALLUCINATION [None]
  - HALLUCINATION, AUDITORY [None]
